FAERS Safety Report 5985973-8 (Version None)
Quarter: 2008Q4

REPORT INFORMATION
  Report Type: 
  Country: None (occurrence: None)
  Receive Date: 20081209
  Receipt Date: 20081128
  Transmission Date: 20090506
  Serious: Yes (Life-Threatening, Hospitalization)
  Sender: FDA-Public Use
  Company Number: JP-BAYER-JP-2007-001412

PATIENT
  Age: 33 Year
  Sex: Female

DRUGS (20)
  1. BETAFERON [Suspect]
     Indication: RELAPSING-REMITTING MULTIPLE SCLEROSIS
     Route: 058
     Dates: start: 20051108, end: 20051110
  2. BETAFERON [Suspect]
     Route: 058
     Dates: start: 20051112, end: 20061015
  3. BETAFERON [Suspect]
     Route: 058
     Dates: start: 20070115, end: 20080803
  4. BETAFERON [Suspect]
     Route: 058
     Dates: start: 20080804
  5. MEDROL [Concomitant]
     Indication: RELAPSING-REMITTING MULTIPLE SCLEROSIS
     Route: 048
     Dates: start: 20051108
  6. ZANTAC [Concomitant]
     Indication: ABDOMINAL DISCOMFORT
     Route: 048
     Dates: start: 20051108, end: 20061026
  7. POLLAKISU [Concomitant]
     Indication: DYSURIA
     Route: 048
     Dates: start: 20051013, end: 20061026
  8. DEPAKENE [Concomitant]
     Indication: RELAPSING-REMITTING MULTIPLE SCLEROSIS
     Route: 048
     Dates: start: 20051013, end: 20051117
  9. DEPAKENE [Concomitant]
     Route: 048
     Dates: start: 20051108
  10. LOXONIN [Concomitant]
     Indication: ARTHRALGIA
     Route: 048
     Dates: start: 20051205
  11. SELBEX [Concomitant]
     Indication: ABDOMINAL PAIN UPPER
     Route: 048
     Dates: start: 20051205, end: 20060921
  12. CYANOCOBALAMIN [Concomitant]
     Indication: RELAPSING-REMITTING MULTIPLE SCLEROSIS
     Route: 048
     Dates: start: 20060309
  13. MOBIC [Concomitant]
     Indication: RELAPSING-REMITTING MULTIPLE SCLEROSIS
     Route: 048
     Dates: start: 20060704, end: 20061026
  14. VOLTAREN [Concomitant]
     Indication: RELAPSING-REMITTING MULTIPLE SCLEROSIS
     Route: 061
     Dates: start: 20060727, end: 20061026
  15. MUCOSTA [Concomitant]
     Indication: ABDOMINAL DISCOMFORT
     Route: 048
     Dates: start: 20070220
  16. DEPAS [Concomitant]
     Indication: ANXIETY
     Route: 048
     Dates: start: 20070806
  17. ALFAROL [Concomitant]
     Indication: OSTEOPOROSIS
     Route: 048
     Dates: start: 20051108, end: 20051119
  18. ONEALFA [Concomitant]
     Indication: RELAPSING-REMITTING MULTIPLE SCLEROSIS
     Dosage: AS USED: 1 ?G
     Route: 048
     Dates: start: 20071016
  19. LANSOPRAZOLE [Concomitant]
     Indication: ABDOMINAL DISCOMFORT
     Route: 048
  20. FLOMOX [Concomitant]
     Indication: PROPHYLAXIS
     Dosage: AS USED: 300 MG
     Route: 048
     Dates: start: 20080901, end: 20080907

REACTIONS (14)
  - ARTHRALGIA [None]
  - CONSTIPATION [None]
  - DYSURIA [None]
  - HYPERCHOLESTEROLAEMIA [None]
  - NASOPHARYNGITIS [None]
  - NEUTROPHIL COUNT INCREASED [None]
  - PLATELET COUNT DECREASED [None]
  - PNEUMONIA [None]
  - PYREXIA [None]
  - RESIDUAL URINE [None]
  - SEPSIS [None]
  - URINARY TRACT INFECTION [None]
  - WHITE BLOOD CELL COUNT DECREASED [None]
  - WHITE BLOOD CELL COUNT INCREASED [None]
